FAERS Safety Report 6939509-5 (Version None)
Quarter: 2010Q3

REPORT INFORMATION
  Report Type: 
  Country: None (occurrence: None)
  Receive Date: 20100819
  Receipt Date: 20100803
  Transmission Date: 20110219
  Serious: Yes (Other)
  Sender: FDA-Public Use
  Company Number: 1000015705

PATIENT
  Age: 50 Year
  Sex: Female

DRUGS (3)
  1. ESCITALOPRAM [Suspect]
     Dosage: 5 MG (5 MG,1 IN 1 D),ORAL
     Route: 048
  2. ANXIOLYTIC (NOS) [Concomitant]
  3. SLEEPING DRUG (NOS) [Concomitant]

REACTIONS (5)
  - AGITATION [None]
  - LIBIDO DECREASED [None]
  - LOSS OF LIBIDO [None]
  - POLYURIA [None]
  - THIRST [None]
